FAERS Safety Report 4448206-X (Version None)
Quarter: 2004Q3

REPORT INFORMATION
  Report Type: 
  Country: None (occurrence: None)
  Receive Date: 20040913
  Receipt Date: 20040901
  Transmission Date: 20050211
  Serious: Yes (Life-Threatening, Hospitalization)
  Sender: FDA-Public Use
  Company Number: 2004JP001583

PATIENT
  Age: 57 Year
  Sex: Male
  Weight: 75 kg

DRUGS (3)
  1. CEFAZOLIN [Suspect]
     Dosage: 2G PER DAY
     Route: 042
     Dates: start: 20040810, end: 20040810
  2. MIDAZOLAM [Concomitant]
     Dates: start: 20040810, end: 20040810
  3. XYLOCAINE [Concomitant]
     Dates: start: 20040810, end: 20040810

REACTIONS (4)
  - ANAPHYLACTIC SHOCK [None]
  - BLOOD PRESSURE INCREASED [None]
  - HEART RATE INCREASED [None]
  - PRURITUS [None]
